FAERS Safety Report 11273791 (Version 1)
Quarter: 2015Q3

REPORT INFORMATION
  Report Type: Spontaneous
  Country: US (occurrence: US)
  Receive Date: 20150715
  Receipt Date: 20150715
  Transmission Date: 20151125
  Serious: No
  Sender: FDA-Public Use
  Company Number: US-ENDO PHARMACEUTICALS INC.-201502100

PATIENT
  Sex: Male

DRUGS (7)
  1. SYNTHROID [Concomitant]
     Active Substance: LEVOTHYROXINE SODIUM
  2. CIALIS [Concomitant]
     Active Substance: TADALAFIL
  3. EDEX [Suspect]
     Active Substance: ALPROSTADIL
     Dosage: 2.5 MCG AS NEEDED
     Route: 017
  4. LIPITOR [Concomitant]
     Active Substance: ATORVASTATIN CALCIUM
  5. STEROID NASAL SPRAY [Concomitant]
     Active Substance: UNSPECIFIED INGREDIENT
  6. ASPIRIN. [Concomitant]
     Active Substance: ASPIRIN
     Dosage: ^MINI DOSE^
  7. ENALAPRIL [Concomitant]
     Active Substance: ENALAPRIL

REACTIONS (2)
  - Prescribed underdose [Not Recovered/Not Resolved]
  - Drug ineffective [Not Recovered/Not Resolved]

NARRATIVE: CASE EVENT DATE: 2015
